FAERS Safety Report 7923680-2 (Version None)
Quarter: 2011Q4

REPORT INFORMATION
  Report Type: 
  Country: None (occurrence: None)
  Receive Date: 20111117
  Receipt Date: 20110207
  Transmission Date: 20120403
  Serious: No
  Sender: FDA-Public Use
  Company Number: US-AMGEN-USASP2011002318

PATIENT
  Age: 52 Year
  Sex: Male

DRUGS (3)
  1. HYDROXYZINE HCL [Concomitant]
     Dosage: 25 MG, Q6H
     Route: 048
  2. ENBREL [Suspect]
     Indication: ARTHRITIS
  3. ENBREL [Suspect]
     Indication: PSORIASIS
     Dosage: 50 MG, 2 TIMES/WK
     Dates: start: 20101111

REACTIONS (9)
  - JOINT STIFFNESS [None]
  - MUSCULOSKELETAL STIFFNESS [None]
  - PAIN IN EXTREMITY [None]
  - JOINT SWELLING [None]
  - OEDEMA PERIPHERAL [None]
  - SKIN EXFOLIATION [None]
  - ARTHRALGIA [None]
  - MUSCULOSKELETAL PAIN [None]
  - BLISTER [None]
